FAERS Safety Report 7742203-4 (Version None)
Quarter: 2011Q3

REPORT INFORMATION
  Report Type: 
  Country: None (occurrence: None)
  Receive Date: 20110826
  Receipt Date: 20110808
  Transmission Date: 20111222
  Serious: Yes (Hospitalization)
  Sender: FDA-Public Use
  Company Number: 2010SP056225

PATIENT
  Age: 24 Year
  Sex: Female
  Weight: 54.4316 kg

DRUGS (19)
  1. AMOXICILLIN [Concomitant]
  2. MULTI-VITAMINS [Concomitant]
  3. ZITHROMAX [Concomitant]
  4. IMPLANON [Suspect]
     Indication: CONTRACEPTION
     Dosage: 1 DF;UNK;SBDE
     Dates: start: 20100730
  5. ZOFRAN [Concomitant]
  6. PERCOCET [Concomitant]
  7. PHENERGAN DM [Concomitant]
  8. PRENATAL VITAMINS [Concomitant]
  9. KEFLEX [Concomitant]
  10. AZITHROMYCIN [Concomitant]
  11. ZYRTEC-D 12 HOUR [Concomitant]
  12. AUGMENTIN '125' [Concomitant]
  13. TERAZOL 1 [Concomitant]
  14. MULTI-VITAMINS [Concomitant]
  15. ZITHROMAX [Concomitant]
  16. AUGMENTIN '125' [Concomitant]
  17. PROMETHAZINE DM [Concomitant]
  18. TYLENOL-500 [Concomitant]
  19. XANAX [Concomitant]

REACTIONS (9)
  - PREGNANCY WITH IMPLANT CONTRACEPTIVE [None]
  - DEVICE DIFFICULT TO USE [None]
  - DEVICE DISLOCATION [None]
  - GASTROINTESTINAL DISORDER [None]
  - VOMITING [None]
  - MATERNAL EXPOSURE DURING PREGNANCY [None]
  - ANTEPARTUM HAEMORRHAGE [None]
  - ANAEMIA OF PREGNANCY [None]
  - FULL BLOOD COUNT ABNORMAL [None]
